FAERS Safety Report 7971589-0 (Version None)
Quarter: 2011Q4

REPORT INFORMATION
  Report Type: 
  Country: None (occurrence: None)
  Receive Date: 20111212
  Receipt Date: 20111208
  Transmission Date: 20120403
  Serious: Yes (Hospitalization, Other)
  Sender: FDA-Public Use
  Company Number: FR-PFIZER INC-2011299362

PATIENT
  Age: 84 Year
  Sex: Female

DRUGS (6)
  1. ASPIRIN [Suspect]
     Indication: INFARCTION
     Dosage: 75 MG
     Route: 048
     Dates: start: 20110901
  2. NEXIUM [Suspect]
     Route: 048
  3. BISOPROLOL FUMARATE [Suspect]
     Indication: INFARCTION
     Dosage: 1.25 MG, 1X/DAY
     Route: 048
     Dates: start: 20110901
  4. PERINDOPRIL ERBUMINE [Suspect]
     Indication: INFARCTION
     Dosage: 2 MG
     Route: 048
     Dates: start: 20110901
  5. PLAVIX [Suspect]
     Indication: INFARCTION
     Dosage: 75 MG
     Route: 048
     Dates: start: 20110901
  6. XANAX [Suspect]
     Route: 048

REACTIONS (2)
  - AGRANULOCYTOSIS [None]
  - LUNG DISORDER [None]
